FAERS Safety Report 8615885-2 (Version None)
Quarter: 2012Q3

REPORT INFORMATION
  Report Type: 
  Country: None (occurrence: None)
  Receive Date: 20120823
  Receipt Date: 20120813
  Transmission Date: 20120928
  Serious: Yes (Death)
  Sender: FDA-Public Use
  Company Number: US-GLAXOSMITHKLINE-A0721437A

PATIENT
  Age: 64 Year
  Sex: Male
  Weight: 90.9 kg

DRUGS (2)
  1. AVANDAMET [Suspect]
     Indication: TYPE 2 DIABETES MELLITUS
     Dosage: 4MG PER DAY
     Route: 048
     Dates: start: 20020601, end: 20020801
  2. AVANDIA [Suspect]
     Indication: TYPE 2 DIABETES MELLITUS
     Dosage: 8MG PER DAY
     Route: 048
     Dates: start: 20020601, end: 20070601

REACTIONS (4)
  - MYOCARDIAL INFARCTION [None]
  - PULMONARY OEDEMA [None]
  - CARDIO-RESPIRATORY ARREST [None]
  - CARDIAC FAILURE CONGESTIVE [None]
